FAERS Safety Report 4883175-X (Version None)
Quarter: 2006Q1

REPORT INFORMATION
  Report Type: 
  Country: None (occurrence: None)
  Receive Date: 20060117
  Receipt Date: 20060117
  Transmission Date: 20060701
  Serious: Yes (Other)
  Sender: FDA-Public Use
  Company Number: None

PATIENT
  Age: 54 Year
  Sex: Female
  Weight: 52.6173 kg

DRUGS (3)
  1. TARGRETIN [Suspect]
     Indication: OESOPHAGEAL CANCER METASTATIC
     Dosage: 9 CAP QD PO
     Route: 048
     Dates: start: 20050310, end: 20050407
  2. TAXOTERE [Suspect]
     Dosage: 41 MG QWK X3 EVERY 4 WK IV DRIP
     Route: 041
     Dates: start: 20050310, end: 20050324
  3. DEXAMETHASONE TAB [Concomitant]

REACTIONS (1)
  - PNEUMONIA [None]
